FAERS Safety Report 18403099 (Version 2)
Quarter: 2021Q3

REPORT INFORMATION
  Report Type: Spontaneous
  Country: JP (occurrence: JP)
  Receive Date: 20201020
  Receipt Date: 20210712
  Transmission Date: 20211014
  Serious: Yes (Hospitalization, Other)
  Sender: FDA-Public Use
  Company Number: JP-009507513-2010JPN001542J

PATIENT
  Age: 69 Year
  Sex: Female
  Weight: 39 kg

DRUGS (5)
  1. CARBOPLATIN. [Concomitant]
     Active Substance: CARBOPLATIN
     Indication: NON-SMALL CELL LUNG CANCER STAGE IV
     Dosage: 489 MILLIGRAM/DAY
     Route: 041
     Dates: start: 20200401, end: 20200603
  2. KEYTRUDA [Suspect]
     Active Substance: PEMBROLIZUMAB
     Indication: NON-SMALL CELL LUNG CANCER STAGE IV
     Dosage: 200 MILLIGRAM, Q3W
     Route: 041
     Dates: start: 20200401, end: 20200916
  3. MEDICON [DEXTROMETHORPHAN HYDROBROMIDE] [Concomitant]
     Active Substance: DEXTROMETHORPHAN HYDROBROMIDE
     Indication: NON-SMALL CELL LUNG CANCER STAGE IV
     Dosage: 15 MILLIGRAM, TID
     Route: 048
     Dates: start: 20200318
  4. ALIMTA [Suspect]
     Active Substance: PEMETREXED DISODIUM
     Indication: NON-SMALL CELL LUNG CANCER STAGE IV
     Dosage: 660 MILLIGRAM/DAY
     Route: 041
     Dates: start: 20200401, end: 20200916
  5. PANVITAN [ASCORBIC ACID;CALCIUM PANTOTHENATE;CYANOCOBALAMIN;ERGOCALCIF [Concomitant]
     Indication: PROPHYLAXIS
     Dosage: 1 GRAM/DAY
     Route: 048
     Dates: start: 20200326, end: 20201020

REACTIONS (5)
  - Blood creatinine increased [Recovering/Resolving]
  - Insomnia [Unknown]
  - Kidney fibrosis [Unknown]
  - Osteoporosis [Unknown]
  - Renal tubular atrophy [Unknown]

NARRATIVE: CASE EVENT DATE: 20201007
